FAERS Safety Report 17894890 (Version 6)
Quarter: 2021Q4

REPORT INFORMATION
  Report Type: Spontaneous
  Country: US (occurrence: US)
  Receive Date: 20200615
  Receipt Date: 20211204
  Transmission Date: 20220303
  Serious: No
  Sender: FDA-Public Use
  Company Number: US-SA-2020SA153218

PATIENT
  Age: 77 Year
  Sex: Female

DRUGS (1)
  1. LANTUS [Suspect]
     Active Substance: INSULIN GLARGINE
     Indication: Type 2 diabetes mellitus
     Dosage: 10 IU, TID
     Route: 065

REACTIONS (3)
  - Blood glucose increased [Recovered/Resolved]
  - Inappropriate schedule of product administration [Unknown]
  - Product storage error [Unknown]
